FAERS Safety Report 7451245-8 (Version None)
Quarter: 2011Q2

REPORT INFORMATION
  Report Type: 
  Country: None (occurrence: None)
  Receive Date: 20110502
  Receipt Date: 20110422
  Transmission Date: 20111010
  Serious: Yes (Hospitalization)
  Sender: FDA-Public Use
  Company Number: KR-MUTUAL PHARMACEUTICAL COMPANY, INC.-MTDZ20110001

PATIENT
  Age: 71 Year
  Sex: Male

DRUGS (3)
  1. METRONIDAZOLE [Suspect]
     Indication: ENTEROCOLITIS INFECTIOUS
     Route: 048
  2. UNKNOWN [Concomitant]
  3. METRONIDAZOLE [Suspect]

REACTIONS (1)
  - TOXIC ENCEPHALOPATHY [None]
